FAERS Safety Report 24107241 (Version 1)
Quarter: 2024Q3

REPORT INFORMATION
  Report Type: Report from Study
  Country: US (occurrence: None)
  Receive Date: 20240718
  Receipt Date: 20240718
  Transmission Date: 20241017
  Serious: Yes (Other)
  Sender: ASTRAZENECA
  Company Number: 2020SE97606

PATIENT
  Age: 63 Year
  Sex: Male

DRUGS (17)
  1. FASENRA [Suspect]
     Active Substance: BENRALIZUMAB
     Indication: Asthma
     Route: 058
     Dates: start: 20200724
  2. CARVEDILOL [Concomitant]
     Active Substance: CARVEDILOL
     Route: 048
  3. BREO ELLIPTA [Concomitant]
     Active Substance: FLUTICASONE FUROATE\VILANTEROL TRIFENATATE
     Dosage: 100-25MCG BLST W/DEV
  4. INCRUSE ELLIPTA [Concomitant]
     Active Substance: UMECLIDINIUM BROMIDE
     Dosage: 62.5 MCG BLST W/DEV
  5. SPIRONOLACTONE [Concomitant]
     Active Substance: SPIRONOLACTONE
     Route: 048
  6. TYLENOL [Concomitant]
     Active Substance: ACETAMINOPHEN
     Route: 048
  7. ARMOUR THYROID [Concomitant]
     Active Substance: THYROID, PORCINE
     Route: 048
  8. MIDOL [Concomitant]
     Active Substance: IBUPROFEN
     Dosage: 500-15-60 TABLET
     Route: 048
  9. OMEGA-3-ACID ETHYL ESTERS [Concomitant]
     Active Substance: OMEGA-3-ACID ETHYL ESTERS
  10. XOPENEX [Concomitant]
     Active Substance: LEVALBUTEROL HYDROCHLORIDE
     Dosage: 0.31MG/3ML VIAL-NEB
  11. ZINC PICOLINATE [Concomitant]
     Active Substance: ZINC PICOLINATE
     Route: 065
  12. ZILEUTON [Concomitant]
     Active Substance: ZILEUTON
     Dosage: 600 MG TBMP 12HR
  13. ALA-HIST IR [Concomitant]
     Active Substance: DEXBROMPHENIRAMINE MALEATE
     Dosage: 2 MG TABLET
     Route: 048
  14. LUTEIN-ZEAXANTHIN [Concomitant]
  15. KELP [Concomitant]
     Active Substance: KELP
     Route: 048
  16. PROAIR HFA [Concomitant]
     Active Substance: ALBUTEROL SULFATE
     Dosage: 90 MCG HFA AER AD
  17. TART CHERRY [Concomitant]
     Dosage: 30-250-75 CAPSULE
     Route: 048

REACTIONS (3)
  - Hypertension [Recovered/Resolved]
  - Back pain [Recovered/Resolved]
  - Abdominal discomfort [Recovered/Resolved]

NARRATIVE: CASE EVENT DATE: 20200725
